FAERS Safety Report 8616121-3 (Version None)
Quarter: 2012Q3

REPORT INFORMATION
  Report Type: 
  Country: None (occurrence: None)
  Receive Date: 20120823
  Receipt Date: 20120820
  Transmission Date: 20120928
  Serious: No
  Sender: FDA-Public Use
  Company Number: US-PFIZER INC-2012161921

PATIENT
  Age: 76 Year

DRUGS (5)
  1. MORPHINE SULFATE [Suspect]
     Dosage: UNK
  2. DOXYCYCLINE HYCLATE [Suspect]
     Dosage: UNK
  3. ASPIRIN [Suspect]
     Dosage: UNK
  4. SOMA [Suspect]
     Dosage: UNK
  5. PENICILLIN [Suspect]

REACTIONS (1)
  - DRUG HYPERSENSITIVITY [None]
